FAERS Safety Report 8177978-6 (Version None)
Quarter: 2012Q1

REPORT INFORMATION
  Report Type: 
  Country: None (occurrence: None)
  Receive Date: 20120130
  Receipt Date: 20110527
  Transmission Date: 20120608
  Serious: Yes (Hospitalization)
  Sender: FDA-Public Use
  Company Number: 034120

PATIENT
  Age: 43 Year
  Sex: Male
  Weight: 109 kg

DRUGS (6)
  1. DEPAKOTE [Concomitant]
  2. ATIVAN [Concomitant]
  3. TEGRETOL [Concomitant]
  4. DEPAKOTE ER [Concomitant]
  5. KEPPRA [Suspect]
     Indication: EPILEPSY
     Dosage: (4000 MG ORAL)
     Route: 048
     Dates: start: 20090101
  6. KEPPRA [Suspect]
     Indication: EPILEPSY
     Dosage: (500 MG ORAL)
     Route: 048
     Dates: start: 20091101

REACTIONS (1)
  - VERTIGO [None]
